FAERS Safety Report 12643719 (Version 1)
Quarter: 2016Q3

REPORT INFORMATION
  Report Type: Spontaneous
  Country: US (occurrence: US)
  Receive Date: 20160811
  Receipt Date: 20160811
  Transmission Date: 20161109
  Serious: Yes (Hospitalization)
  Sender: FDA-Public Use
  Company Number: US-DRREDDYS-USA/USA/16/0082149

PATIENT
  Age: 78 Year
  Sex: Female
  Weight: 72.5 kg

DRUGS (2)
  1. ATORVASTATIN TABLETS 10MG, 20 MG, 40 MG (091650) [Suspect]
     Active Substance: ATORVASTATIN
     Indication: HYPERLIPIDAEMIA
     Route: 048
  2. SIMVASTATIN 20 MG [Suspect]
     Active Substance: SIMVASTATIN
     Indication: HYPERLIPIDAEMIA
     Route: 065

REACTIONS (5)
  - Chromaturia [Recovering/Resolving]
  - Gait disturbance [Unknown]
  - Hepatic enzyme increased [Recovered/Resolved]
  - Myocardial infarction [Unknown]
  - Myalgia [Not Recovered/Not Resolved]

NARRATIVE: CASE EVENT DATE: 20160530
